FAERS Safety Report 9406227 (Version 1)
Quarter: 2013Q3

REPORT INFORMATION
  Report Type: Spontaneous
  Country: US (occurrence: US)
  Receive Date: 20130717
  Receipt Date: 20130717
  Transmission Date: 20140515
  Serious: Yes (Other)
  Sender: FDA-Public Use
  Company Number: US-TEVA-418640USA

PATIENT
  Age: 50 Year
  Sex: Female

DRUGS (3)
  1. PROVIGIL [Suspect]
     Indication: NARCOLEPSY
     Route: 048
     Dates: start: 2005, end: 201103
  2. HYDROCHLORTHIAZIDE [Concomitant]
     Indication: HYPERTENSION
  3. METHYLPHENIDATE [Concomitant]
     Dosage: AS NEEDED (ONCE WEEKLY)
     Dates: start: 1997

REACTIONS (1)
  - Pulmonary arterial hypertension [Recovered/Resolved]
